FAERS Safety Report 19455505 (Version 1)
Quarter: 2021Q2

REPORT INFORMATION
  Report Type: Spontaneous
  Country: US (occurrence: US)
  Receive Date: 20210623
  Receipt Date: 20210623
  Transmission Date: 20210717
  Serious: Yes (Hospitalization, Other)
  Sender: FDA-Public Use
  Company Number: US-TARO-2021TAR00629

PATIENT
  Sex: Male

DRUGS (1)
  1. ACETAMINOPHEN. [Suspect]
     Active Substance: ACETAMINOPHEN
     Indication: PRENATAL CARE
     Dosage: 1000 MG 1?2 TIMES PER DAY
     Route: 064

REACTIONS (3)
  - Lung assist device therapy [Recovered/Resolved]
  - Neonatal respiratory failure [Recovered/Resolved]
  - Ductus arteriosus premature closure [Recovered/Resolved]
